FAERS Safety Report 5720559-1 (Version None)
Quarter: 2008Q2

REPORT INFORMATION
  Report Type: 
  Country: None (occurrence: None)
  Receive Date: 20080424
  Receipt Date: 20080424
  Transmission Date: 20081010
  Serious: No
  Sender: FDA-Public Use
  Company Number: None

PATIENT
  Age: 67 Year
  Sex: Female
  Weight: 71.1 kg

DRUGS (1)
  1. ESOMEPRAZOLE MAGNESIUM [Suspect]
     Dosage: 20 MG   EVERY DAY  PO
     Route: 048
     Dates: start: 20050131, end: 20080318

REACTIONS (1)
  - DIARRHOEA [None]
